FAERS Safety Report 9082680 (Version 1)
Quarter: 2013Q1

REPORT INFORMATION
  Report Type: Report from Study
  Country: US (occurrence: US)
  Receive Date: 20130130
  Receipt Date: 20130130
  Transmission Date: 20140127
  Serious: Yes (Other)
  Sender: FDA-Public Use
  Company Number: US-ABBOTT-12P-163-0962699-00

PATIENT
  Sex: Female
  Weight: 82.63 kg

DRUGS (3)
  1. HUMIRA 40 MG/ 0.8 ML PRE-FILLED SYRINGE [Suspect]
     Indication: ANKYLOSING SPONDYLITIS
     Route: 058
     Dates: start: 200906, end: 200911
  2. UNKNOWN MEDICATIONS [Concomitant]
     Indication: DIABETES MELLITUS
  3. UNKNOWN MEDICATION [Concomitant]
     Indication: HYPERTENSION

REACTIONS (3)
  - Breast cancer [Unknown]
  - Back pain [Not Recovered/Not Resolved]
  - Ankylosing spondylitis [Not Recovered/Not Resolved]
